FAERS Safety Report 12867182 (Version 1)
Quarter: 2016Q4

REPORT INFORMATION
  Report Type: Spontaneous
  Country: US (occurrence: US)
  Receive Date: 20161020
  Receipt Date: 20161020
  Transmission Date: 20170207
  Serious: No
  Sender: FDA-Public Use
  Company Number: US-JAZZ-2016-US-014359

PATIENT
  Age: 51 Year
  Sex: Male

DRUGS (14)
  1. TESTOSTERONE CYPIONATE. [Concomitant]
     Active Substance: TESTOSTERONE CYPIONATE
  2. XYREM [Suspect]
     Active Substance: SODIUM OXYBATE
     Dosage: 2.25 G, BID
     Route: 048
     Dates: start: 20160725, end: 2016
  3. VITAMIN B12 [Concomitant]
     Active Substance: CYANOCOBALAMIN
  4. XYREM [Suspect]
     Active Substance: SODIUM OXYBATE
     Dosage: INCREASED TO HIGHER DOSE
     Route: 048
     Dates: start: 20160722, end: 20160722
  5. XYREM [Suspect]
     Active Substance: SODIUM OXYBATE
     Dosage: INCREASED TO HIGHER DOSE
     Route: 048
     Dates: start: 20160724, end: 20160724
  6. VITAMIN D3 [Concomitant]
     Active Substance: CHOLECALCIFEROL
  7. XYREM [Suspect]
     Active Substance: SODIUM OXYBATE
     Indication: NARCOLEPSY
     Dosage: 2.25 G, BID
     Route: 048
     Dates: start: 201607, end: 20160721
  8. INTERMEZZO [Concomitant]
     Active Substance: ZOLPIDEM TARTRATE
  9. CIALIS [Concomitant]
     Active Substance: TADALAFIL
  10. XYREM [Suspect]
     Active Substance: SODIUM OXYBATE
     Dosage: 2.25 G, BID
     Route: 048
     Dates: start: 20160723, end: 20160723
  11. QUINAPRIL. [Concomitant]
     Active Substance: QUINAPRIL
  12. XYREM [Suspect]
     Active Substance: SODIUM OXYBATE
     Dosage: 3 G, BID
     Route: 048
     Dates: start: 2016
  13. MULTIVITAMINS [Concomitant]
     Active Substance: VITAMINS
  14. ADDERALL [Concomitant]
     Active Substance: AMPHETAMINE ASPARTATE\AMPHETAMINE SULFATE\DEXTROAMPHETAMINE SACCHARATE\DEXTROAMPHETAMINE SULFATE

REACTIONS (3)
  - Feeling of body temperature change [Recovered/Resolved]
  - Insomnia [Unknown]
  - Night sweats [Recovered/Resolved]

NARRATIVE: CASE EVENT DATE: 20160722
